FAERS Safety Report 4967424-5 (Version None)
Quarter: 2006Q2

REPORT INFORMATION
  Report Type: 
  Country: None (occurrence: None)
  Receive Date: 20060404
  Receipt Date: 20060321
  Transmission Date: 20061013
  Serious: Yes (Hospitalization)
  Sender: FDA-Public Use
  Company Number: PHRM2006FR01135

PATIENT
  Age: 74 Year
  Sex: Male

DRUGS (1)
  1. VISUDYNE [Suspect]
     Dates: start: 20060227, end: 20060227

REACTIONS (4)
  - CHILLS [None]
  - FATIGUE [None]
  - MUSCULOSKELETAL STIFFNESS [None]
  - PYREXIA [None]
